FAERS Safety Report 8154567-0 (Version None)
Quarter: 2012Q1

REPORT INFORMATION
  Report Type: 
  Country: None (occurrence: None)
  Receive Date: 20120221
  Receipt Date: 20120214
  Transmission Date: 20120608
  Serious: Yes (Death, Other)
  Sender: FDA-Public Use
  Company Number: US-TEVA-314086USA

PATIENT

DRUGS (1)
  1. PACLITAXEL [Suspect]
     Dosage: 150 MG / 25 ML
     Dates: start: 20111212

REACTIONS (1)
  - ESCHERICHIA SEPSIS [None]
